FAERS Safety Report 23128053 (Version 3)
Quarter: 2023Q4

REPORT INFORMATION
  Report Type: Report from Study
  Country: CA (occurrence: CA)
  Receive Date: 20231031
  Receipt Date: 20231110
  Transmission Date: 20240110
  Serious: Yes (Hospitalization)
  Sender: FDA-Public Use
  Company Number: CA-002147023-NVSC2023CA228431

PATIENT
  Age: 53 Year
  Sex: Male

DRUGS (1)
  1. MAYZENT [Suspect]
     Active Substance: SIPONIMOD
     Indication: Secondary progressive multiple sclerosis
     Dosage: 2 MG, QD
     Route: 048
     Dates: start: 20231003

REACTIONS (4)
  - Cellulitis [Unknown]
  - Erythema [Unknown]
  - Peripheral swelling [Unknown]
  - Hypersensitivity [Unknown]
